FAERS Safety Report 21907322 (Version 2)
Quarter: 2023Q1

REPORT INFORMATION
  Report Type: Spontaneous
  Country: FR (occurrence: FR)
  Receive Date: 20230125
  Receipt Date: 20230127
  Transmission Date: 20230418
  Serious: Yes (Other)
  Sender: FDA-Public Use
  Company Number: FR-MYLANLABS-2022M1141018

PATIENT
  Age: 69 Year
  Sex: Male

DRUGS (10)
  1. IMATINIB [Suspect]
     Active Substance: IMATINIB
     Indication: Penile neoplasm
     Dosage: 800 MILLIGRAM, TWO TIMES A DAY (400 MILLIGRAM, BID)
     Route: 065
  2. IMATINIB [Suspect]
     Active Substance: IMATINIB
     Indication: Metastatic malignant melanoma
  3. IMATINIB [Suspect]
     Active Substance: IMATINIB
     Indication: C-kit gene mutation
  4. DACARBAZINE [Suspect]
     Active Substance: DACARBAZINE
     Indication: Metastatic malignant melanoma
     Dosage: UNK, CYCLICAL
     Route: 065
  5. DACARBAZINE [Suspect]
     Active Substance: DACARBAZINE
     Indication: Penile neoplasm
  6. IPILIMUMAB [Suspect]
     Active Substance: IPILIMUMAB
     Indication: Penile neoplasm
     Dosage: UNK
     Route: 065
  7. IPILIMUMAB [Suspect]
     Active Substance: IPILIMUMAB
     Indication: Metastatic malignant melanoma
  8. PEMBROLIZUMAB [Suspect]
     Active Substance: PEMBROLIZUMAB
     Indication: Penile neoplasm
     Dosage: UNK
     Route: 065
  9. PEMBROLIZUMAB [Suspect]
     Active Substance: PEMBROLIZUMAB
     Indication: Metastatic malignant melanoma
  10. NIVOLUMAB [Suspect]
     Active Substance: NIVOLUMAB
     Indication: Penile neoplasm
     Dosage: UNK
     Route: 065

REACTIONS (4)
  - Neoplasm recurrence [Unknown]
  - Drug ineffective [Unknown]
  - Metastasis [Unknown]
  - Disease progression [Unknown]
